FAERS Safety Report 18082750 (Version 2)
Quarter: 2020Q3

REPORT INFORMATION
  Report Type: Report from Study
  Country: CA (occurrence: CA)
  Receive Date: 20200728
  Receipt Date: 20200819
  Transmission Date: 20201103
  Serious: Yes (Other)
  Sender: FDA-Public Use
  Company Number: CA-009507513-1911CAN000203

PATIENT
  Age: 63 Year
  Sex: Female
  Weight: 99 kg

DRUGS (8)
  1. PEMBROLIZUMAB. [Suspect]
     Active Substance: PEMBROLIZUMAB
     Indication: MALIGNANT MELANOMA
     Dosage: STRENGTH: 2MG/KG, 200 MILLIGRAM, Q3W
     Route: 042
     Dates: start: 20191030
  2. PEMBROLIZUMAB. [Suspect]
     Active Substance: PEMBROLIZUMAB
     Dosage: 200 MILLIGRAM/KILOGRAM,2 MG/KG, Q3W
     Route: 042
  3. PEMBROLIZUMAB. [Suspect]
     Active Substance: PEMBROLIZUMAB
     Dosage: STRENGTH: 2 MG/KG, 200 MILLIGRAM, Q3W
     Route: 042
     Dates: start: 20200702
  4. PEMBROLIZUMAB. [Suspect]
     Active Substance: PEMBROLIZUMAB
     Dosage: STRENGTH: 2MG/KG, 200 MILLIGRAM, Q3W
     Route: 042
  5. PEMBROLIZUMAB. [Suspect]
     Active Substance: PEMBROLIZUMAB
     Dosage: 200 MILLIGRAM/KILOGRAM,2 MG/KG, Q3W
     Route: 042
  6. PEMBROLIZUMAB. [Suspect]
     Active Substance: PEMBROLIZUMAB
     Dosage: STRENGTH: 2 MG/KG, 200 MILLIGRAM, Q3W
     Route: 042
     Dates: start: 20200812
  7. PEMBROLIZUMAB. [Suspect]
     Active Substance: PEMBROLIZUMAB
     Indication: RENAL CELL CARCINOMA
     Dosage: 200 MILLIGRAM, Q3W, STRENGTH: 2MG/KG
     Route: 042
     Dates: start: 2019
  8. PEMBROLIZUMAB. [Suspect]
     Active Substance: PEMBROLIZUMAB
     Dosage: 200 MILLIGRAM/KILOGRAM,2 MG/KG, Q3W
     Route: 042
     Dates: start: 20200610

REACTIONS (36)
  - Anxiety [Unknown]
  - Fear [Unknown]
  - General physical condition abnormal [Unknown]
  - Anger [Unknown]
  - Productive cough [Unknown]
  - Paraesthesia [Unknown]
  - Pain in extremity [Unknown]
  - Frustration tolerance decreased [Unknown]
  - Sinus congestion [Unknown]
  - Herpes zoster [Unknown]
  - Hypertension [Unknown]
  - Pain [Unknown]
  - Fatigue [Unknown]
  - Nausea [Unknown]
  - Cough [Unknown]
  - Somnolence [Unknown]
  - Dyspepsia [Unknown]
  - Inappropriate schedule of product administration [Unknown]
  - Sleep disorder [Unknown]
  - Depression [Unknown]
  - Asthma [Unknown]
  - Fibromyalgia [Unknown]
  - Decreased appetite [Unknown]
  - Dry mouth [Unknown]
  - Dyspnoea [Unknown]
  - Diarrhoea [Unknown]
  - Disturbance in attention [Unknown]
  - Malaise [Unknown]
  - Neuropathy peripheral [Unknown]
  - Depressed mood [Unknown]
  - Blood pressure abnormal [Unknown]
  - Weight abnormal [Unknown]
  - Pulse abnormal [Unknown]
  - Feeling abnormal [Unknown]
  - Memory impairment [Unknown]
  - Arthritis [Unknown]

NARRATIVE: CASE EVENT DATE: 2019
